FAERS Safety Report 17083169 (Version 2)
Quarter: 2019Q4

REPORT INFORMATION
  Report Type: Spontaneous
  Country: DE (occurrence: DE)
  Receive Date: 20191127
  Receipt Date: 20191204
  Transmission Date: 20200122
  Serious: Yes (Other)
  Sender: FDA-Public Use
  Company Number: DE-MYLANLABS-2019M1115248

PATIENT
  Age: 58 Year
  Sex: Female

DRUGS (3)
  1. METHOTREXATE. [Suspect]
     Active Substance: METHOTREXATE
     Dosage: 10 MILLIGRAM, QD
  2. L-THYROXINE                        /00068001/ [Concomitant]
     Active Substance: LEVOTHYROXINE
     Indication: HYPOTHYROIDISM
     Dosage: UNK
     Route: 065
  3. METHOTREXATE. [Suspect]
     Active Substance: METHOTREXATE
     Indication: POLYARTHRITIS
     Dosage: 7.5 MG, DAILY (STRENGTH 7.5 MG)
     Route: 065
     Dates: start: 201901

REACTIONS (6)
  - Insomnia [Unknown]
  - Bronchial obstruction [Unknown]
  - Lung disorder [Unknown]
  - Oropharyngeal pain [Unknown]
  - Cough [Unknown]
  - Nausea [Unknown]

NARRATIVE: CASE EVENT DATE: 201902
